FAERS Safety Report 17921562 (Version 2)
Quarter: 2020Q2

REPORT INFORMATION
  Report Type: Other
  Country: PT (occurrence: PT)
  Receive Date: 20200622
  Receipt Date: 20200626
  Transmission Date: 20200714
  Serious: Yes (Other)
  Sender: FDA-Public Use
  Company Number: PT-MACLEODS PHARMACEUTICALS US LTD-MAC2020026856

PATIENT

DRUGS (1)
  1. ESCITALOPRAM 10MG TABLET [Suspect]
     Active Substance: ESCITALOPRAM OXALATE
     Indication: PSYCHIATRIC SYMPTOM
     Dosage: 10 MILLIGRAM, SINGLE
     Route: 065

REACTIONS (1)
  - Metastases to liver [Recovered/Resolved]

NARRATIVE: CASE EVENT DATE: 201207
